FAERS Safety Report 8066248-2 (Version None)
Quarter: 2012Q1

REPORT INFORMATION
  Report Type: 
  Country: None (occurrence: None)
  Receive Date: 20120124
  Receipt Date: 20120112
  Transmission Date: 20120608
  Serious: Yes (Other)
  Sender: FDA-Public Use
  Company Number: CA-JNJFOC-20120106671

PATIENT
  Age: 75 Year
  Sex: Female
  Weight: 87.09 kg

DRUGS (5)
  1. TYLENOL COMPLETE COLD COUGH + FLU [Suspect]
     Indication: NASOPHARYNGITIS
     Route: 048
     Dates: start: 20120106, end: 20120107
  2. LIPITOR [Concomitant]
     Indication: BLOOD CHOLESTEROL
     Dates: start: 19970101
  3. ASPIRIN [Concomitant]
     Indication: CARDIAC DISORDER
     Dates: start: 20000101
  4. MELOXICAM [Concomitant]
     Indication: OSTEOARTHRITIS
     Dates: start: 20100101
  5. APO-TRIAZIDE [Concomitant]
     Indication: HYPERTENSION
     Dosage: 25MG/60MG
     Dates: start: 20040101

REACTIONS (2)
  - PRODUCT QUALITY ISSUE [None]
  - BLOOD PRESSURE INCREASED [None]
